FAERS Safety Report 8090404 (Version 4)
Quarter: 2014Q1

REPORT INFORMATION
  Report Type: Spontaneous
  Country: US (occurrence: US)
  Receive Date: 20110815
  Receipt Date: 20140110
  Transmission Date: 20141002
  Serious: Yes (Hospitalization, Other)
  Sender: FDA-Public Use
  Company Number: US-ASTRAZENECA-2011SE47082

PATIENT
  Age: 77 Year
  Sex: Female
  Weight: 46.3 kg

DRUGS (17)
  1. ATACAND [Suspect]
     Indication: BLOOD PRESSURE ABNORMAL
     Route: 048
     Dates: start: 2002
  2. ATACAND [Suspect]
     Indication: BLOOD PRESSURE ABNORMAL
     Route: 048
  3. ATENOLOL [Suspect]
     Indication: CARDIAC DISORDER
     Route: 048
     Dates: start: 2011
  4. NEXIUM [Suspect]
     Indication: ULCER
     Route: 048
  5. NEXIUM [Suspect]
     Indication: ULCER
     Route: 048
     Dates: start: 2010, end: 20131213
  6. ALBUTEROL [Concomitant]
     Dosage: 90 MCG AS NEEDED
     Route: 065
  7. ASPIRIN [Concomitant]
     Indication: CARDIAC DISORDER
     Route: 048
     Dates: start: 2004, end: 2012
  8. ASPIRIN [Concomitant]
     Indication: CARDIAC DISORDER
     Route: 048
     Dates: start: 2012
  9. COREG [Concomitant]
     Route: 048
  10. LIPITOR [Concomitant]
     Indication: BLOOD CHOLESTEROL ABNORMAL
     Route: 048
     Dates: start: 2004, end: 2011
  11. LIPITOR [Concomitant]
     Indication: BLOOD CHOLESTEROL ABNORMAL
     Route: 048
     Dates: start: 2011
  12. MULTIVITAMIN [Concomitant]
     Route: 048
  13. NITROSTAT [Concomitant]
     Indication: ANGINA PECTORIS
     Dosage: ONE TAB AS NEEDED UPTO THREE TIMES
     Route: 060
  14. PLAVIX [Concomitant]
     Route: 048
  15. SPIRIVA [Concomitant]
     Dosage: 18 MCG
     Route: 065
  16. VITAMIN D [Concomitant]
     Dosage: 2500 UNITS DAILY
     Route: 065
  17. HYDROCHLOROTHIAZIDE [Concomitant]
     Indication: OEDEMA PERIPHERAL
     Dosage: PRN
     Route: 048
     Dates: start: 2011

REACTIONS (15)
  - Myocardial infarction [Unknown]
  - Acute coronary syndrome [Unknown]
  - Transient ischaemic attack [Recovered/Resolved]
  - Coronary artery disease [Unknown]
  - Acute myocardial infarction [Unknown]
  - Hypertension [Unknown]
  - Hyperlipidaemia [Unknown]
  - Thinking abnormal [Unknown]
  - Joint swelling [Unknown]
  - Chest discomfort [Unknown]
  - Limb discomfort [Unknown]
  - Amnesia [Unknown]
  - Malaise [Unknown]
  - Drug dose omission [Not Recovered/Not Resolved]
  - Off label use [Unknown]
